FAERS Safety Report 15201214 (Version 23)
Quarter: 2021Q1

REPORT INFORMATION
  Report Type: Spontaneous
  Country: US (occurrence: US)
  Receive Date: 20180726
  Receipt Date: 20210216
  Transmission Date: 20210419
  Serious: No
  Sender: FDA-Public Use
  Company Number: US-PFIZER INC-2018299647

PATIENT
  Age: 65 Year
  Sex: Female
  Weight: 51.3 kg

DRUGS (5)
  1. SYNTHROID [Concomitant]
     Active Substance: LEVOTHYROXINE SODIUM
     Indication: HYPOTHYROIDISM
     Dosage: 100 UG, DAILY
  2. PREMARIN [Suspect]
     Active Substance: ESTROGENS, CONJUGATED
     Dosage: UNK
     Route: 048
  3. PREMARIN [Suspect]
     Active Substance: ESTROGENS, CONJUGATED
     Dosage: 1.25 MG, 1X/DAY
     Route: 048
  4. PREMARIN [Suspect]
     Active Substance: ESTROGENS, CONJUGATED
     Indication: ARTIFICIAL MENOPAUSE
     Dosage: 1.25 MG
     Route: 048
     Dates: start: 1985
  5. PREMARIN [Suspect]
     Active Substance: ESTROGENS, CONJUGATED
     Dosage: 1.25 MG, 1X/DAY
     Route: 048

REACTIONS (14)
  - Drug ineffective [Unknown]
  - Oestradiol abnormal [Unknown]
  - Hyperoxaluria [Unknown]
  - Product dispensing error [Unknown]
  - Product physical consistency issue [Unknown]
  - Mood altered [Unknown]
  - Functional gastrointestinal disorder [Unknown]
  - Poor quality product administered [Unknown]
  - Disturbance in attention [Unknown]
  - Sleep disorder [Unknown]
  - Amnesia [Unknown]
  - Pollakiuria [Unknown]
  - Oestrone decreased [Unknown]
  - Product shape issue [Unknown]
